FAERS Safety Report 7225490-0 (Version None)
Quarter: 2011Q1

REPORT INFORMATION
  Report Type: 
  Country: None (occurrence: None)
  Receive Date: 20110113
  Receipt Date: 20110107
  Transmission Date: 20110831
  Serious: Yes (Death)
  Sender: FDA-Public Use
  Company Number: US-MERCK-1101USA00910

PATIENT
  Age: 40 Year
  Sex: Male

DRUGS (11)
  1. NISOLDIPINE [Suspect]
     Route: 065
  2. LEVOTHYROXINE SODIUM [Suspect]
     Route: 065
  3. FUROSEMIDE [Suspect]
     Route: 065
  4. ZOCOR [Suspect]
     Route: 048
  5. GLYBURIDE [Suspect]
     Route: 065
  6. CLOPIDOGREL BESYLATE [Suspect]
     Route: 065
  7. AMLODIPINE [Suspect]
     Route: 065
  8. TAMSULOSIN HYDROCHLORIDE [Suspect]
     Route: 065
  9. HYDRALAZINE [Suspect]
     Route: 065
  10. VASOTEC [Suspect]
     Route: 048
  11. ACETAMINOPHEN AND HYDROCODONE BITARTRATE [Suspect]
     Route: 065

REACTIONS (2)
  - OVERDOSE [None]
  - COMPLETED SUICIDE [None]
